FAERS Safety Report 5202765-8 (Version None)
Quarter: 2006Q4

REPORT INFORMATION
  Report Type: 
  Country: None (occurrence: None)
  Receive Date: 20061018
  Receipt Date: 20051220
  Transmission Date: 20070319
  Serious: Yes (Hospitalization)
  Sender: FDA-Public Use
  Company Number: 429194

PATIENT
  Age: 55 Year
  Sex: Female
  Weight: 113.4 kg

DRUGS (7)
  1. ALEVE [Suspect]
     Indication: PAIN IN EXTREMITY
     Dosage: 220 MG DAILY; ORAL
     Route: 048
     Dates: start: 20050715, end: 20050715
  2. NAPROXEN SODIUM [Suspect]
     Indication: PAIN IN EXTREMITY
     Dosage: 375 MG DAILY; ORAL
     Route: 048
     Dates: start: 20050718
  3. LASIX [Concomitant]
  4. PREVACID [Concomitant]
  5. POTASSIUM CHLORIDE [Concomitant]
  6. FOLIC ACID [Concomitant]
  7. LIBRIUM [Concomitant]

REACTIONS (2)
  - JUGULAR VEIN THROMBOSIS [None]
  - PHLEBITIS [None]
